FAERS Safety Report 8831576 (Version 3)
Quarter: 2013Q3

REPORT INFORMATION
  Report Type: Spontaneous
  Country: US (occurrence: US)
  Receive Date: 20121009
  Receipt Date: 20130710
  Transmission Date: 20140515
  Serious: No
  Sender: FDA-Public Use
  Company Number: US-ASTRAZENECA-2012SE76289

PATIENT
  Age: 67 Year
  Sex: Male
  Weight: 136.1 kg

DRUGS (1)
  1. TOPROL XL [Suspect]
     Indication: HYPERTENSION
     Route: 048

REACTIONS (3)
  - Hypertension [Unknown]
  - Intentional drug misuse [Unknown]
  - Drug dose omission [Unknown]
